FAERS Safety Report 5314872-X (Version None)
Quarter: 2007Q2

REPORT INFORMATION
  Report Type: 
  Country: None (occurrence: None)
  Receive Date: 20070502
  Receipt Date: 20070424
  Transmission Date: 20071010
  Serious: Yes (Disabling)
  Sender: FDA-Public Use
  Company Number: GB-ROCHE-495449

PATIENT
  Age: 68 Year
  Sex: Male
  Weight: 114.3 kg

DRUGS (2)
  1. XENICAL [Suspect]
     Indication: OBESITY
     Route: 048
     Dates: start: 20060918, end: 20070420
  2. 2 UNSPECIFIED CONCOMITANT DRUGS [Concomitant]

REACTIONS (1)
  - DYSPNOEA [None]
